FAERS Safety Report 10056637 (Version 5)
Quarter: 2014Q3

REPORT INFORMATION
  Report Type: Spontaneous
  Country: IT (occurrence: IT)
  Receive Date: 20140403
  Receipt Date: 20140707
  Transmission Date: 20150326
  Serious: Yes (Hospitalization, Other)
  Sender: FDA-Public Use
  Company Number: IT-PFIZER INC-2014093443

PATIENT
  Age: 53 Year
  Sex: Female

DRUGS (2)
  1. ALPRAZOLAM. [Suspect]
     Active Substance: ALPRAZOLAM
     Indication: INSOMNIA
     Dosage: 0.5 MG, 1X/DAY IN THE EVENING
     Route: 048
     Dates: start: 2011
  2. ALPRAZOLAM. [Suspect]
     Active Substance: ALPRAZOLAM
     Dosage: 20 DF, UNK
     Route: 048
     Dates: start: 20140209, end: 20140209

REACTIONS (10)
  - Intentional overdose [Unknown]
  - Self injurious behaviour [Unknown]
  - Drug abuse [Unknown]
  - Dystonia [Unknown]
  - Sopor [Recovered/Resolved]
  - Stress [Unknown]
  - Off label use [Unknown]
  - Impulsive behaviour [Unknown]
  - Breast cancer [Unknown]
  - Depression [Unknown]

NARRATIVE: CASE EVENT DATE: 2013
